FAERS Safety Report 24809964 (Version 3)
Quarter: 2025Q1

REPORT INFORMATION
  Report Type: Spontaneous
  Country: ES (occurrence: ES)
  Receive Date: 20250106
  Receipt Date: 20250126
  Transmission Date: 20250408
  Serious: Yes (Death)
  Sender: TEVA
  Company Number: ES-TEVA-VS-3282578

PATIENT
  Age: 82 Year
  Sex: Male

DRUGS (5)
  1. CARBOPLATIN [Suspect]
     Active Substance: CARBOPLATIN
     Indication: Sarcomatoid mesothelioma
     Route: 065
  2. CARBOPLATIN [Suspect]
     Active Substance: CARBOPLATIN
     Indication: Sarcomatoid mesothelioma
     Route: 065
  3. GEMCITABINE [Suspect]
     Active Substance: GEMCITABINE
     Indication: Sarcomatoid mesothelioma
     Route: 065
  4. PEMETREXED [Suspect]
     Active Substance: PEMETREXED
     Indication: Sarcomatoid mesothelioma
     Route: 065
  5. VINORELBINE [Suspect]
     Active Substance: VINORELBINE TARTRATE
     Indication: Sarcomatoid mesothelioma
     Route: 048

REACTIONS (1)
  - Drug ineffective [Fatal]
